FAERS Safety Report 12760988 (Version 1)
Quarter: 2016Q3

REPORT INFORMATION
  Report Type: Spontaneous
  Country: US (occurrence: US)
  Receive Date: 20160919
  Receipt Date: 20160919
  Transmission Date: 20161109
  Serious: Yes (Hospitalization)
  Sender: FDA-Public Use
  Company Number: US-ASTRAZENECA-2016SE97380

PATIENT
  Age: 652 Month
  Sex: Female
  Weight: 72.6 kg

DRUGS (5)
  1. ALBUTEROL RESCUE INHALER [Concomitant]
     Indication: PROPHYLAXIS
     Route: 055
  2. PREDNISOLONE. [Concomitant]
     Active Substance: PREDNISOLONE
     Dates: start: 20160909
  3. TUDORZA PRESSAIR [Suspect]
     Active Substance: ACLIDINIUM BROMIDE
     Indication: CHRONIC OBSTRUCTIVE PULMONARY DISEASE
     Route: 055
     Dates: start: 2016
  4. TUDORZA PRESSAIR [Suspect]
     Active Substance: ACLIDINIUM BROMIDE
     Indication: CHRONIC OBSTRUCTIVE PULMONARY DISEASE
     Dosage: 400MCG 2 PUFF EVERY 12 HOURS
     Route: 055
     Dates: start: 2014, end: 201601
  5. SYMBICORT [Suspect]
     Active Substance: BUDESONIDE\FORMOTEROL FUMARATE DIHYDRATE
     Indication: CHRONIC OBSTRUCTIVE PULMONARY DISEASE
     Dosage: 160/4.5MCG 2 PUFFS TWICE DAILY
     Route: 055
     Dates: start: 2008

REACTIONS (5)
  - Intentional device misuse [Unknown]
  - Visual impairment [Unknown]
  - Intentional product misuse [Unknown]
  - Chronic obstructive pulmonary disease [Recovered/Resolved with Sequelae]
  - Device issue [Unknown]

NARRATIVE: CASE EVENT DATE: 201608
